FAERS Safety Report 19716319 (Version 3)
Quarter: 2021Q3

REPORT INFORMATION
  Report Type: Report from Study
  Country: US (occurrence: US)
  Receive Date: 20210819
  Receipt Date: 20210921
  Transmission Date: 20211014
  Serious: Yes (Other)
  Sender: FDA-Public Use
  Company Number: US-SA-2021SA243523

PATIENT
  Age: 67 Year
  Sex: Male

DRUGS (8)
  1. DUPILUMAB [Suspect]
     Active Substance: DUPILUMAB
     Dosage: 300 MG, QOW
     Route: 058
     Dates: start: 2021, end: 20210721
  2. EPINEPHRINE. [Concomitant]
     Active Substance: EPINEPHRINE
     Indication: ANAPHYLACTIC REACTION
     Dosage: UNK, PRN
     Route: 030
  3. NEORAL [Concomitant]
     Active Substance: CYCLOSPORINE
     Dosage: 1 DF, QD
     Route: 048
  4. PRASUGREL. [Concomitant]
     Active Substance: PRASUGREL
     Route: 048
  5. DUPILUMAB [Suspect]
     Active Substance: DUPILUMAB
     Dosage: 300 MG, QOW
     Route: 058
     Dates: start: 20210728
  6. FISH OIL [Concomitant]
     Active Substance: FISH OIL
     Dosage: UNK, Q8H
     Route: 048
  7. DUPILUMAB [Suspect]
     Active Substance: DUPILUMAB
     Indication: DERMATITIS ATOPIC
     Dosage: 600 MG, 1X
     Route: 058
     Dates: start: 20210526, end: 20210526
  8. NITROGLYCERIN. [Concomitant]
     Active Substance: NITROGLYCERIN
     Dosage: UNK, PRN
     Route: 060

REACTIONS (13)
  - Throat irritation [Unknown]
  - Malaise [Unknown]
  - Tooth disorder [Unknown]
  - Nasopharyngitis [Unknown]
  - Chills [Not Recovered/Not Resolved]
  - Diarrhoea [Not Recovered/Not Resolved]
  - Influenza [Unknown]
  - Inappropriate schedule of product administration [Unknown]
  - Nausea [Not Recovered/Not Resolved]
  - Immunodeficiency [Unknown]
  - Vomiting [Not Recovered/Not Resolved]
  - Illness [Not Recovered/Not Resolved]
  - Pruritus [Not Recovered/Not Resolved]

NARRATIVE: CASE EVENT DATE: 2021
